FAERS Safety Report 5961704-2 (Version None)
Quarter: 2008Q4

REPORT INFORMATION
  Report Type: 
  Country: None (occurrence: None)
  Receive Date: 20081114
  Receipt Date: 20080715
  Transmission Date: 20090506
  Serious: No
  Sender: FDA-Public Use
  Company Number: WAES 0807USA02902

PATIENT
  Age: 47 Year
  Sex: Male

DRUGS (5)
  1. ISENTRESS [Suspect]
     Indication: HIV INFECTION
     Dosage: 400 MG/ PO
     Route: 048
     Dates: start: 20080708
  2. NORVIR [Suspect]
  3. APTIVUS [Suspect]
  4. THERAPY UNSPECIFIED 500 MG [Suspect]
  5. VIREAD [Concomitant]

REACTIONS (7)
  - COUGH [None]
  - DIARRHOEA [None]
  - DRUG INEFFECTIVE [None]
  - FEELING OF BODY TEMPERATURE CHANGE [None]
  - HEPATIC PAIN [None]
  - SPUTUM DISCOLOURED [None]
  - SWELLING [None]
